FAERS Safety Report 5533315-4 (Version None)
Quarter: 2007Q4

REPORT INFORMATION
  Report Type: 
  Country: None (occurrence: None)
  Receive Date: 20071129
  Receipt Date: 20071129
  Transmission Date: 20080405
  Serious: Yes (Hospitalization)
  Sender: FDA-Public Use
  Company Number: None

PATIENT
  Sex: Female
  Weight: 87 kg

DRUGS (2)
  1. CYCLOPHOSPHAMIDE [Suspect]
     Dosage: 1150 MG
  2. DOXORUBICIN HYDROCHLORIDE [Suspect]
     Dosage: 115 MG

REACTIONS (6)
  - ANGIOEDEMA [None]
  - BODY TEMPERATURE INCREASED [None]
  - NAUSEA [None]
  - ORAL INTAKE REDUCED [None]
  - PHARYNGOLARYNGEAL PAIN [None]
  - SWOLLEN TONGUE [None]
